FAERS Safety Report 7449101-4 (Version None)
Quarter: 2011Q2

REPORT INFORMATION
  Report Type: 
  Country: None (occurrence: None)
  Receive Date: 20110502
  Receipt Date: 20101213
  Transmission Date: 20111010
  Serious: Yes (Hospitalization)
  Sender: FDA-Public Use
  Company Number: US-BAYER-201012586NA

PATIENT
  Age: 30 Year
  Sex: Female
  Weight: 61 kg

DRUGS (11)
  1. NSAID'S [Concomitant]
     Dates: start: 20000101
  2. LEVAQUIN [Concomitant]
     Dates: start: 20000101
  3. LUNESTA [Concomitant]
  4. LOESTRIN 1.5/30 [Concomitant]
     Indication: CONTRACEPTION
  5. SYNTHROID [Concomitant]
  6. METHADONE [Concomitant]
     Dosage: 10 MG, UNK
     Dates: start: 20080602
  7. MEDROL COMP [Concomitant]
     Dosage: 4 MG, UNK
     Dates: start: 20071121
  8. RELPAX [Concomitant]
     Dosage: 40 MG, UNK
     Dates: start: 20080602
  9. YAZ [Suspect]
     Indication: CONTRACEPTION
     Dosage: RECEIVED MANY MONTHS WORTH OF SAMPLES SEVERAL TIMES DURING VISITS FROM 2002 +#8211; 2009 FROM HCP
     Route: 048
     Dates: start: 20080424, end: 20091029
  10. YASMIN [Suspect]
     Indication: CONTRACEPTION
     Dosage: RECEIVED MANY MONTHS WORTH OF SAMPLES SEVERAL TIMES DURING VISITS FROM 2002 +#8211; 2009 FROM HCP
     Route: 048
     Dates: start: 20050430, end: 20070421
  11. MOTRIN [Concomitant]
     Dosage: 800 MG, UNK

REACTIONS (1)
  - CHOLELITHIASIS [None]
